FAERS Safety Report 5119474-6 (Version None)
Quarter: 2006Q3

REPORT INFORMATION
  Report Type: 
  Country: None (occurrence: None)
  Receive Date: 20060928
  Receipt Date: 20060915
  Transmission Date: 20061208
  Serious: Yes (Hospitalization)
  Sender: FDA-Public Use
  Company Number: US-2006-025210

PATIENT
  Age: 53 Year
  Sex: Female
  Weight: 81.6 kg

DRUGS (6)
  1. BETASERON [Suspect]
     Indication: RELAPSING-REMITTING MULTIPLE SCLEROSIS
     Dosage: 8 MIU, EVERY 2D, SUBCUTANEOUS
     Route: 058
     Dates: start: 19940808
  2. RITALIN [Suspect]
     Indication: FATIGUE
     Dosage: 10 MG, 2X/DAY
  3. CARDIZEM (DILTIAZEM) COATED TABLET [Concomitant]
  4. ATENOLOL COATED TABLET [Concomitant]
  5. IMDUR COATED TABLET [Concomitant]
  6. LESCOL (FLUVASTATIN) COATED TABLET [Concomitant]

REACTIONS (3)
  - DEPRESSION [None]
  - FATIGUE [None]
  - MYOCARDIAL INFARCTION [None]
